FAERS Safety Report 5798133-0 (Version None)
Quarter: 2008Q3

REPORT INFORMATION
  Report Type: 
  Country: None (occurrence: None)
  Receive Date: 20080702
  Receipt Date: 20070717
  Transmission Date: 20090109
  Serious: No
  Sender: FDA-Public Use
  Company Number: US-ASTRAZENECA-2007UW17034

PATIENT
  Age: 47 Year
  Sex: Male

DRUGS (2)
  1. ZOLADEX [Suspect]
     Indication: PROSTATE CANCER STAGE II
     Route: 058
  2. RADIATION THERAPY [Concomitant]
     Indication: PROSTATE CANCER STAGE II

REACTIONS (3)
  - ERECTILE DYSFUNCTION [None]
  - HOT FLUSH [None]
  - LOSS OF LIBIDO [None]
